FAERS Safety Report 7492976-3 (Version None)
Quarter: 2011Q2

REPORT INFORMATION
  Report Type: 
  Country: None (occurrence: None)
  Receive Date: 20110520
  Receipt Date: 20110517
  Transmission Date: 20111010
  Serious: Yes (Other)
  Sender: FDA-Public Use
  Company Number: US-JNJFOC-20110507847

PATIENT
  Age: 5 Year
  Sex: Female

DRUGS (2)
  1. CHILDREN'S TYLENOL SUSPENSION [Suspect]
     Indication: PYREXIA
     Dosage: PER PACKAGE INSTRUCTIONS
     Route: 048
     Dates: start: 20110514
  2. CHILDREN'S TYLENOL SUSPENSION [Suspect]
     Route: 048

REACTIONS (1)
  - HALLUCINATION [None]
